FAERS Safety Report 8825768 (Version 1)
Quarter: 2012Q4

REPORT INFORMATION
  Report Type: 
  Country: US (occurrence: US)
  Receive Date: 20121004
  Receipt Date: 20121004
  Transmission Date: 20130627
  Serious: Yes (Hospitalization)
  Sender: FDA-Public Use
  Company Number: US-GENZYME-POMP-1002456

PATIENT
  Age: 44 Year
  Sex: Male

DRUGS (2)
  1. LUMIZYME [Suspect]
     Indication: GLYCOGEN STORAGE DISEASE TYPE II
     Dosage: 1500 mg, qow
     Route: 042
     Dates: start: 20060828
  2. LACTAID [Concomitant]
     Indication: LACTOSE INTOLERANCE

REACTIONS (4)
  - Hypokinesia [Not Recovered/Not Resolved]
  - Burns second degree [Not Recovered/Not Resolved]
  - Fall [Not Recovered/Not Resolved]
  - Pain [Not Recovered/Not Resolved]
